FAERS Safety Report 8487965-6 (Version None)
Quarter: 2012Q3

REPORT INFORMATION
  Report Type: 
  Country: None (occurrence: None)
  Receive Date: 20120705
  Receipt Date: 20120628
  Transmission Date: 20120928
  Serious: Yes (Hospitalization)
  Sender: FDA-Public Use
  Company Number: PHHY2012AU053629

PATIENT

DRUGS (2)
  1. OMEPRAZOLE [Concomitant]
  2. CLOZARIL [Suspect]
     Dosage: 200 MG, UNK
     Dates: start: 20120531, end: 20120622

REACTIONS (6)
  - INFLUENZA LIKE ILLNESS [None]
  - COUGH [None]
  - LIVER FUNCTION TEST ABNORMAL [None]
  - PYREXIA [None]
  - C-REACTIVE PROTEIN INCREASED [None]
  - LETHARGY [None]
